FAERS Safety Report 17525860 (Version 1)
Quarter: 2020Q1

REPORT INFORMATION
  Report Type: Spontaneous
  Country: GB (occurrence: GB)
  Receive Date: 20200311
  Receipt Date: 20200311
  Transmission Date: 20200409
  Serious: Yes (Other)
  Sender: FDA-Public Use
  Company Number: GB-TEVA-2020-GB-1196108

PATIENT
  Age: 31 Year
  Sex: Female
  Weight: 56 kg

DRUGS (1)
  1. PAROXETINE. [Suspect]
     Active Substance: PAROXETINE
     Indication: PERINATAL DEPRESSION
     Dosage: 20 MG
     Route: 048
     Dates: start: 201710

REACTIONS (2)
  - Hypersexuality [Recovered/Resolved]
  - High risk sexual behaviour [Unknown]

NARRATIVE: CASE EVENT DATE: 201801
